FAERS Safety Report 15772870 (Version 2)
Quarter: 2019Q1

REPORT INFORMATION
  Report Type: Spontaneous
  Country: DE (occurrence: DE)
  Receive Date: 20181228
  Receipt Date: 20190214
  Transmission Date: 20190417
  Serious: Yes (Hospitalization, Other)
  Sender: FDA-Public Use
  Company Number: DE-SHIRE-DE201848730

PATIENT

DRUGS (10)
  1. PANTOPRAZOLE [Concomitant]
     Active Substance: PANTOPRAZOLE
     Indication: GASTRIC DISORDER
     Dosage: UNK
  2. NOVALGIN [Concomitant]
     Indication: PAIN
     Dosage: UNK
  3. MIRTAZAPINE. [Concomitant]
     Active Substance: MIRTAZAPINE
     Indication: DEPRESSION
     Dosage: UNK
  4. 476 (MESALAZINE/MESALAMINE) [Suspect]
     Active Substance: MESALAMINE
     Indication: CROHN^S DISEASE
     Dosage: 1000 MG, 2X/DAY:BID
     Route: 065
  5. PREDNISOLON [Suspect]
     Active Substance: PREDNISOLONE
     Indication: CROHN^S DISEASE
     Dosage: 10 MILLIGRAM, 1X/DAY:QD
     Route: 065
     Dates: end: 20181113
  6. FLIXABI [Suspect]
     Active Substance: INFLIXIMAB
     Indication: CROHN^S DISEASE
     Dosage: 1100 MG, UNK
     Route: 065
     Dates: start: 20180831, end: 20181106
  7. METHOTREXATE. [Suspect]
     Active Substance: METHOTREXATE
     Indication: CROHN^S DISEASE
     Dosage: 15 MILLIGRAM, 1X/DAY:QD
     Route: 065
     Dates: end: 20181113
  8. FLIXABI [Suspect]
     Active Substance: INFLIXIMAB
     Dosage: 1100 MG, UNK
     Route: 065
     Dates: start: 20181008, end: 20181106
  9. FLIXABI [Suspect]
     Active Substance: INFLIXIMAB
     Dosage: 1100 MG, UNK
     Route: 065
     Dates: start: 20181106, end: 20181106
  10. MESALAZIN [Suspect]
     Active Substance: MESALAMINE
     Indication: CROHN^S DISEASE
     Dosage: 1000 MG, QOD
     Route: 065

REACTIONS (1)
  - Ileus [Recovered/Resolved]

NARRATIVE: CASE EVENT DATE: 20181110
